FAERS Safety Report 5285116-2 (Version None)
Quarter: 2007Q2

REPORT INFORMATION
  Report Type: 
  Country: None (occurrence: None)
  Receive Date: 20070403
  Receipt Date: 20070330
  Transmission Date: 20071010
  Serious: Yes (Death, Life-Threatening, Hospitalization)
  Sender: FDA-Public Use
  Company Number: PHEH2007US03440

PATIENT
  Age: 39 Year
  Sex: Female

DRUGS (2)
  1. GLEEVEC [Suspect]
     Indication: CHRONIC MYELOID LEUKAEMIA
     Dosage: 400 MG, QD
     Route: 048
     Dates: start: 20061017, end: 20070306
  2. IRON [Concomitant]
     Route: 048
     Dates: start: 20070223

REACTIONS (14)
  - ABDOMINAL DISCOMFORT [None]
  - ANAEMIA [None]
  - ASCITES [None]
  - ASPARTATE AMINOTRANSFERASE INCREASED [None]
  - BLOOD BILIRUBIN INCREASED [None]
  - COMA HEPATIC [None]
  - DEATH [None]
  - FATIGUE [None]
  - GALLBLADDER DISORDER [None]
  - HEPATIC FAILURE [None]
  - JAUNDICE [None]
  - LIVER FUNCTION TEST ABNORMAL [None]
  - MENORRHAGIA [None]
  - RENAL CYST [None]
